FAERS Safety Report 6967588-8 (Version None)
Quarter: 2010Q3

REPORT INFORMATION
  Report Type: 
  Country: None (occurrence: None)
  Receive Date: 20100907
  Receipt Date: 20100827
  Transmission Date: 20110219
  Serious: Yes (Other)
  Sender: FDA-Public Use
  Company Number: JP-PFIZER INC-2010106772

PATIENT
  Age: 74 Year
  Sex: Male

DRUGS (1)
  1. ZITHROMAC [Suspect]
     Dosage: 500 MG/DAY
     Route: 048
     Dates: start: 20100723, end: 20100725

REACTIONS (2)
  - DYSGEUSIA [None]
  - GASTRITIS EROSIVE [None]
